FAERS Safety Report 6675489-8 (Version None)
Quarter: 2010Q2

REPORT INFORMATION
  Report Type: 
  Country: None (occurrence: None)
  Receive Date: 20100409
  Receipt Date: 20100407
  Transmission Date: 20101027
  Serious: Yes (Hospitalization)
  Sender: FDA-Public Use
  Company Number: B0644514A

PATIENT
  Age: 89 Year
  Sex: Male

DRUGS (2)
  1. ARIXTRA [Suspect]
     Indication: DRUG USE FOR UNKNOWN INDICATION
     Dosage: 7.5MG PER DAY
     Dates: start: 20100127, end: 20100129
  2. PREVISCAN [Suspect]
     Indication: ATRIAL FIBRILLATION
     Dosage: 1TAB PER DAY
     Route: 048

REACTIONS (7)
  - ABDOMINAL PAIN [None]
  - ANAEMIA [None]
  - HAEMATURIA [None]
  - HEMIPARESIS [None]
  - MUSCLE HAEMORRHAGE [None]
  - TRANSIENT ISCHAEMIC ATTACK [None]
  - URINARY TRACT INFECTION [None]
